FAERS Safety Report 8726286 (Version 2)
Quarter: 2013Q3

REPORT INFORMATION
  Report Type: Spontaneous
  Country: US (occurrence: US)
  Receive Date: 20120816
  Receipt Date: 20130703
  Transmission Date: 20140515
  Serious: Yes (Hospitalization, Other)
  Sender: FDA-Public Use
  Company Number: PHEH2012US015913

PATIENT
  Sex: Female

DRUGS (7)
  1. TRILEPTAL [Suspect]
     Indication: DEPRESSION
     Dates: start: 200606, end: 20060803
  2. TRILEPTAL [Suspect]
     Indication: BIPOLAR DISORDER
  3. TOPAMAX [Concomitant]
  4. HYDROXYZINE [Concomitant]
  5. METFORMIN [Concomitant]
  6. CLOTRIMAZOLE [Concomitant]
  7. ACYCLOVIR [Concomitant]

REACTIONS (44)
  - Stevens-Johnson syndrome [Unknown]
  - Pyrexia [Unknown]
  - Transaminases increased [Unknown]
  - Fatigue [Unknown]
  - Urticaria [Unknown]
  - Gastrointestinal disorder [Unknown]
  - Blindness [Unknown]
  - Dry eye [Unknown]
  - Eosinophilia [Unknown]
  - Lip swelling [Unknown]
  - Rash [Recovering/Resolving]
  - Hepatic failure [Unknown]
  - Ear haemorrhage [Unknown]
  - Lymphadenopathy [Unknown]
  - Mucosal inflammation [Unknown]
  - Pharyngeal inflammation [Unknown]
  - Pruritus [Unknown]
  - Eye swelling [Unknown]
  - Bipolar II disorder [Unknown]
  - Polycystic ovaries [Unknown]
  - Simplex virus test positive [Unknown]
  - Asthma [Unknown]
  - Angioedema [Unknown]
  - Anaphylactic reaction [Unknown]
  - Flushing [Unknown]
  - Pharyngeal oedema [Unknown]
  - Bronchitis [Unknown]
  - Pancreatic disorder [Unknown]
  - Asthenia [Unknown]
  - Conjunctivitis [Unknown]
  - Vomiting [Unknown]
  - Viral infection [Unknown]
  - Nausea [Unknown]
  - Rhinitis allergic [Unknown]
  - Nasal congestion [Unknown]
  - Diarrhoea [Unknown]
  - Lymphocytosis [Unknown]
  - Dyspepsia [Unknown]
  - Abdominal pain [Unknown]
  - Back pain [Unknown]
  - Anaemia [Unknown]
  - Dyspnoea [Unknown]
  - Thalassaemia beta [Unknown]
  - Migraine [Unknown]
